FAERS Safety Report 4566596-4 (Version None)
Quarter: 2005Q1

REPORT INFORMATION
  Report Type: 
  Country: None (occurrence: None)
  Receive Date: 20050201
  Receipt Date: 20041029
  Transmission Date: 20050727
  Serious: Yes (Death)
  Sender: FDA-Public Use
  Company Number: GB-BRISTOL-MYERS SQUIBB COMPANY-12755625

PATIENT
  Age: 58 Year
  Sex: Female
  Weight: 75 kg

DRUGS (6)
  1. CYCLOPHOSPHAMIDE [Suspect]
     Indication: ADENOCARCINOMA
     Route: 042
     Dates: start: 20041001, end: 20041001
  2. DOXORUBICIN HCL [Suspect]
     Indication: ADENOCARCINOMA
     Route: 042
     Dates: start: 20041001, end: 20041001
  3. VINCRISTINE [Suspect]
     Indication: ADENOCARCINOMA
     Route: 042
     Dates: start: 20041001, end: 20041001
  4. GENTAMICIN [Concomitant]
     Dates: start: 20040101
  5. TAZOCIN [Concomitant]
     Dates: start: 20040101
  6. FILGRASTIM [Concomitant]
     Dates: start: 20040101

REACTIONS (3)
  - GENERAL PHYSICAL HEALTH DETERIORATION [None]
  - MULTI-ORGAN FAILURE [None]
  - NEUTROPENIC SEPSIS [None]
